FAERS Safety Report 15684677 (Version 1)
Quarter: 2018Q4

REPORT INFORMATION
  Report Type: Spontaneous
  Country: MX (occurrence: MX)
  Receive Date: 20181204
  Receipt Date: 20181204
  Transmission Date: 20190205
  Serious: Yes (Hospitalization)
  Sender: FDA-Public Use
  Company Number: MX-PFIZER INC-2018498278

PATIENT
  Age: 70 Year
  Sex: Male

DRUGS (7)
  1. AAS PROTECT [Concomitant]
     Active Substance: ASPIRIN
     Dosage: 1 DF, UNK (100 MG)
     Route: 048
     Dates: start: 2016
  2. KETOSTERIL [Concomitant]
     Active Substance: AMINO ACIDS
     Indication: RENAL DISORDER
     Dosage: 6 DF, DAILY (EVERY 24 HOURS)
     Dates: start: 201811
  3. CORDARONE [Suspect]
     Active Substance: AMIODARONE HYDROCHLORIDE
     Indication: CARDIAC DISORDER
     Dosage: 0.5 DF, DAILY (2 YEARS APPROXIMATELY)
     Route: 048
     Dates: start: 2016
  4. CONCOR [Concomitant]
     Active Substance: BISOPROLOL FUMARATE
     Dosage: 0.5 DF, (UNK MG) (1/2 TABLET)
     Dates: start: 2016
  5. ATORVASTATIN [Concomitant]
     Active Substance: ATORVASTATIN
     Dosage: 1 DF, UNK (20 MG)
     Route: 048
     Dates: start: 2016
  6. ATORVASTATIN [Concomitant]
     Active Substance: ATORVASTATIN
     Dosage: 1 DF, UNK (40 MG)
     Route: 048
     Dates: start: 2016
  7. TURAZIVE [Concomitant]
     Active Substance: FEBUXOSTAT
     Dosage: 0.5 DF, (UNK MG) (1/2 TABLET)
     Dates: start: 2016

REACTIONS (1)
  - Blister [Not Recovered/Not Resolved]

NARRATIVE: CASE EVENT DATE: 20181117
